FAERS Safety Report 21698849 (Version 3)
Quarter: 2023Q1

REPORT INFORMATION
  Report Type: Spontaneous
  Country: US (occurrence: US)
  Receive Date: 20221208
  Receipt Date: 20230302
  Transmission Date: 20230418
  Serious: No
  Sender: FDA-Public Use
  Company Number: US-PFIZER INC-202201345547

PATIENT
  Age: 42 Year
  Sex: Female

DRUGS (1)
  1. DEPO-PROVERA [Suspect]
     Active Substance: MEDROXYPROGESTERONE ACETATE
     Indication: Contraception
     Dosage: ONE SYRINGE, EVERY 84 DAYS
     Dates: start: 2019

REACTIONS (2)
  - Product administered by wrong person [Unknown]
  - Device delivery system issue [Unknown]
